FAERS Safety Report 19375902 (Version 1)
Quarter: 2021Q2

REPORT INFORMATION
  Report Type: Other
  Country: US (occurrence: US)
  Receive Date: 20210604
  Receipt Date: 20210604
  Transmission Date: 20210717
  Serious: No
  Sender: FDA-Public Use
  Company Number: US-COVIS PHARMA GMBH-AMAG202100969

PATIENT
  Age: 30 Year
  Sex: Female

DRUGS (1)
  1. MAKENA [Suspect]
     Active Substance: HYDROXYPROGESTERONE CAPROATE
     Indication: PREMATURE DELIVERY
     Dosage: 275MG/1.1ML
     Route: 058
     Dates: start: 20210305, end: 20210312

REACTIONS (3)
  - Injection site erythema [Not Recovered/Not Resolved]
  - Limb discomfort [Not Recovered/Not Resolved]
  - Injection site swelling [Not Recovered/Not Resolved]
